FAERS Safety Report 4417882-X (Version None)
Quarter: 2004Q3

REPORT INFORMATION
  Report Type: 
  Country: None (occurrence: None)
  Receive Date: 20040803
  Receipt Date: 20040729
  Transmission Date: 20050211
  Serious: Yes (Other)
  Sender: FDA-Public Use
  Company Number: 2004225561JP

PATIENT
  Age: 54 Year
  Sex: Female

DRUGS (1)
  1. FRAGMIN [Suspect]
     Indication: HAEMODIALYSIS
     Dosage: 1000 U, DAILY, IV
     Route: 042
     Dates: start: 20040726

REACTIONS (4)
  - BACK PAIN [None]
  - BLOOD PRESSURE SYSTOLIC DECREASED [None]
  - EXANTHEM [None]
  - SHOCK [None]
